FAERS Safety Report 7826814-3 (Version None)
Quarter: 2011Q4

REPORT INFORMATION
  Report Type: 
  Country: None (occurrence: None)
  Receive Date: 20111020
  Receipt Date: 20111013
  Transmission Date: 20120403
  Serious: Yes (Hospitalization)
  Sender: FDA-Public Use
  Company Number: IT-AMGEN-ITACT2011004096

PATIENT
  Age: 71 Year
  Sex: Male

DRUGS (14)
  1. FUROSEMIDE [Concomitant]
     Dosage: 75 MG, UNK
     Dates: start: 20091210
  2. SODIUM FERRIC GLUCONATE COMPLEX [Concomitant]
     Dosage: 62.5 MG, QD
     Route: 048
  3. CARVEDILOL [Concomitant]
     Dosage: 100 MG, UNK
     Dates: start: 20090430
  4. AMIODARONE HCL [Concomitant]
     Dosage: 200 MG, 5 TIMES/WK
     Route: 048
  5. BLINDED PLACEBO [Suspect]
     Indication: CARDIAC FAILURE
     Dates: start: 20090205
  6. LANTUS [Concomitant]
     Dosage: 16 UNIT, QD
     Route: 058
  7. BLINDED DARBEPOETIN ALFA [Suspect]
     Indication: CARDIAC FAILURE
     Dates: start: 20090205
  8. SPIRONOLACTONE [Concomitant]
  9. SINTROM [Concomitant]
     Dosage: UNK
  10. OMEPRAZOLE [Concomitant]
     Dosage: 20 MG, QD
     Route: 048
  11. MONOKET [Concomitant]
     Dosage: 80 MG, QD
  12. LANOXIN (IGOXINA) [Concomitant]
     Dosage: 0.062 MG, QD
     Route: 048
     Dates: start: 20091223
  13. ALLOPURINOL [Concomitant]
     Dosage: 150 MG, QD
     Route: 048
  14. FOLIN [Concomitant]
     Dosage: 5 MG, QWK

REACTIONS (3)
  - CARDIAC FAILURE [None]
  - DYSPNOEA [None]
  - PYREXIA [None]
